FAERS Safety Report 5729600-3 (Version None)
Quarter: 2008Q2

REPORT INFORMATION
  Report Type: 
  Country: None (occurrence: None)
  Receive Date: 20080506
  Receipt Date: 20071009
  Transmission Date: 20081010
  Serious: Yes (Other)
  Sender: FDA-Public Use
  Company Number: GR-MERCK-0707GRC00004

PATIENT
  Age: 73 Year
  Sex: Male

DRUGS (5)
  1. COSOPT [Suspect]
     Indication: GLAUCOMA
     Route: 047
     Dates: start: 20030101
  2. BRIMONIDINE TARTRATE [Suspect]
     Indication: GLAUCOMA
     Route: 047
     Dates: start: 20030101
  3. BRINZOLAMIDE [Concomitant]
     Route: 047
  4. LATANOPROST [Concomitant]
     Route: 047
  5. TRAVOPROST [Concomitant]
     Route: 047

REACTIONS (4)
  - EYE DISCHARGE [None]
  - EYE PRURITUS [None]
  - EYELID DISORDER [None]
  - OCULAR HYPERAEMIA [None]
